FAERS Safety Report 9450246 (Version 1)
Quarter: 2013Q3

REPORT INFORMATION
  Report Type: Report from Study
  Country: CZ (occurrence: CZ)
  Receive Date: 20130809
  Receipt Date: 20130809
  Transmission Date: 20140515
  Serious: Yes (Hospitalization, Other)
  Sender: FDA-Public Use
  Company Number: CZ-PFIZER INC-2012039208

PATIENT
  Age: 61 Year
  Sex: Female
  Weight: 67 kg

DRUGS (10)
  1. TOFACITINIB CITRATE [Suspect]
     Indication: RHEUMATOID ARTHRITIS
     Dosage: 10 MG, 2X/DAY
     Route: 048
     Dates: start: 20101101, end: 20110823
  2. TOFACITINIB CITRATE [Suspect]
     Dosage: 5 MG, 2X/DAY
     Route: 048
     Dates: start: 20110824, end: 20120212
  3. NIMESIL [Concomitant]
     Indication: RHEUMATOID ARTHRITIS
     Dosage: UNK
     Dates: start: 20071019
  4. PREDNISON [Concomitant]
     Indication: RHEUMATOID ARTHRITIS
     Dosage: UNK
     Dates: start: 20020212
  5. CALCIUM [Concomitant]
     Indication: OSTEOPOROSIS
     Dosage: UNK
     Dates: start: 20061027
  6. BONVIVA [Concomitant]
     Indication: OSTEOPOROSIS
     Dosage: UNK
     Dates: start: 20060622
  7. AKTIFERRIN [Concomitant]
     Indication: ANAEMIA
     Dosage: UNK
     Dates: start: 20030725
  8. NIZORAL [Concomitant]
     Indication: PHARYNGITIS
     Dosage: UNK
     Dates: start: 20120109, end: 20120123
  9. BERODUAL [Concomitant]
     Indication: TRACHEOBRONCHITIS
     Dosage: UNK
     Dates: start: 20120130, end: 20120210
  10. XYZAL [Concomitant]
     Indication: TRACHEOBRONCHITIS
     Dosage: UNK
     Dates: start: 20120130, end: 20120210

REACTIONS (1)
  - Mantle cell lymphoma [Recovered/Resolved]
